FAERS Safety Report 5825789-6 (Version None)
Quarter: 2008Q3

REPORT INFORMATION
  Report Type: 
  Country: None (occurrence: None)
  Receive Date: 20080729
  Receipt Date: 20080721
  Transmission Date: 20090109
  Serious: Yes (Other)
  Sender: FDA-Public Use
  Company Number: US-GILEAD-2008-0017163

PATIENT
  Sex: Female

DRUGS (4)
  1. LETAIRIS [Suspect]
     Indication: PULMONARY ARTERIAL HYPERTENSION
  2. NITROFURANTOIN [Concomitant]
  3. PAXIL [Concomitant]
  4. VIAGRA [Concomitant]

REACTIONS (1)
  - ERYTHEMA NODOSUM [None]
